FAERS Safety Report 7325561-4 (Version None)
Quarter: 2011Q1

REPORT INFORMATION
  Report Type: 
  Country: None (occurrence: None)
  Receive Date: 20110302
  Receipt Date: 20110221
  Transmission Date: 20110831
  Serious: Yes (Hospitalization)
  Sender: FDA-Public Use
  Company Number: US-B.I. PHARMACEUTICALS,INC./RIDGEFIELD-2011-BP-01180BP

PATIENT
  Sex: Female

DRUGS (2)
  1. PRADAXA [Suspect]
     Dosage: 300 MG
     Dates: start: 20110111
  2. XANAX [Concomitant]
     Indication: ANXIETY

REACTIONS (19)
  - ANAEMIA [None]
  - DIZZINESS [None]
  - HAEMORRHOIDS [None]
  - VOMITING [None]
  - URINARY TRACT INFECTION [None]
  - ABDOMINAL PAIN [None]
  - EPIGASTRIC DISCOMFORT [None]
  - HIATUS HERNIA [None]
  - HYPERGLYCAEMIA [None]
  - DYSPNOEA EXERTIONAL [None]
  - GASTROINTESTINAL HAEMORRHAGE [None]
  - DIVERTICULUM [None]
  - NAUSEA [None]
  - SINUS TACHYCARDIA [None]
  - RECTAL PROLAPSE [None]
  - COLITIS ISCHAEMIC [None]
  - POLYP [None]
  - DIARRHOEA HAEMORRHAGIC [None]
  - ASTHENIA [None]
